FAERS Safety Report 13614315 (Version 1)
Quarter: 2017Q2

REPORT INFORMATION
  Report Type: Spontaneous
  Country: US (occurrence: US)
  Receive Date: 20170606
  Receipt Date: 20170606
  Transmission Date: 20170830
  Serious: No
  Sender: FDA-Public Use
  Company Number: US-TEVA-763946USA

PATIENT
  Sex: Female

DRUGS (2)
  1. BUPRENORPHINE. [Suspect]
     Active Substance: BUPRENORPHINE
     Dosage: 16 MILLIGRAM DAILY;
     Route: 060
     Dates: start: 2017
  2. BUPRENORPHINE. [Suspect]
     Active Substance: BUPRENORPHINE
     Indication: PAIN
     Route: 060
     Dates: start: 2010

REACTIONS (10)
  - Insomnia [Unknown]
  - Product taste abnormal [Unknown]
  - Hypoaesthesia oral [Unknown]
  - Drug ineffective [Unknown]
  - Drug effect decreased [Unknown]
  - Product colour issue [Unknown]
  - Incorrect dose administered [Unknown]
  - Pain [Recovering/Resolving]
  - Motor dysfunction [Unknown]
  - Adverse event [Unknown]

NARRATIVE: CASE EVENT DATE: 2017
